FAERS Safety Report 10037200 (Version 1)
Quarter: 2014Q1

REPORT INFORMATION
  Report Type: Spontaneous
  Country: US (occurrence: US)
  Receive Date: 20140326
  Receipt Date: 20140326
  Transmission Date: 20141002
  Serious: Yes (Hospitalization)
  Sender: FDA-Public Use
  Company Number: US-AMGEN-USASP2014020844

PATIENT
  Age: 54 Year
  Sex: Male

DRUGS (2)
  1. ENBREL [Suspect]
     Indication: RHEUMATOID ARTHRITIS
     Dosage: UNK UNK, QWK
     Route: 065
     Dates: start: 2000
  2. PREDNISONE [Concomitant]
     Dosage: UNK

REACTIONS (5)
  - Pain [Recovered/Resolved]
  - Lung infection [Recovering/Resolving]
  - Arthralgia [Recovered/Resolved]
  - Insomnia [Unknown]
  - Influenza [Recovered/Resolved]
